FAERS Safety Report 15159357 (Version 1)
Quarter: 2018Q3

REPORT INFORMATION
  Report Type: Spontaneous
  Country: ES (occurrence: ES)
  Receive Date: 20180718
  Receipt Date: 20180718
  Transmission Date: 20181010
  Serious: Yes (Death)
  Sender: FDA-Public Use
  Company Number: ES-TEVA-2018-ES-927494

PATIENT
  Age: 82 Year
  Sex: Male

DRUGS (14)
  1. SINEMET CR [Suspect]
     Active Substance: CARBIDOPA\LEVODOPA
     Indication: PARKINSON^S DISEASE
     Dosage: 200/50 MG
     Route: 048
     Dates: start: 20100915, end: 20180129
  2. SOLIFENACINA (2919A) [Concomitant]
     Indication: URINARY INCONTINENCE
  3. CLONAZEPAM 0,5 MG COMPRIMIDO [Concomitant]
     Dates: start: 2016
  4. SINEMET [Suspect]
     Active Substance: CARBIDOPA\LEVODOPA
     Indication: PARKINSON^S DISEASE
     Dosage: 250/50 MG
     Route: 048
     Dates: start: 20111126, end: 20180129
  5. ATORVASTATINA (7400A) [Concomitant]
     Active Substance: ATORVASTATIN
     Indication: ARTERIOSCLEROSIS
     Dates: start: 2014
  6. CLOPIDOGREL [Concomitant]
     Active Substance: CLOPIDOGREL BISULFATE
     Dates: start: 2014
  7. CITALOPRAM 20 MG COMPRIMIDO [Concomitant]
     Dates: start: 201111
  8. ENALAPRIL (2142A) [Concomitant]
     Active Substance: ENALAPRIL
  9. PANTOPRAZOL (7275A) [Concomitant]
     Active Substance: PANTOPRAZOLE
     Dates: start: 2015
  10. LEVOFLOXACIN. [Suspect]
     Active Substance: LEVOFLOXACIN
     Indication: PNEUMONIA
     Route: 048
     Dates: start: 20180129, end: 20180205
  11. QUETIAPINA 50 MG COMPRIMIDO [Concomitant]
     Dates: start: 2015
  12. PROMETAX 9,5 MG/24 H PARCHE TRANSDERMICO, 60 PARCHES [Concomitant]
     Dates: start: 201511
  13. SERETIDE 25 MICROGRAMOS/250 MICROGRAMOS/INHALACION,  SUSPENSION PARA I [Concomitant]
     Dates: start: 2010
  14. DELTIUS 25.000 UI/2,5 ML SOLUCION ORAL [Concomitant]
     Dates: start: 2016

REACTIONS (6)
  - Pseudomembranous colitis [Fatal]
  - Dyskinesia [Fatal]
  - Hypotension [Fatal]
  - Diarrhoea [Fatal]
  - Abdominal pain [Fatal]
  - Anuria [Fatal]

NARRATIVE: CASE EVENT DATE: 20180124
